FAERS Safety Report 7965555-9 (Version None)
Quarter: 2011Q4

REPORT INFORMATION
  Report Type: 
  Country: None (occurrence: None)
  Receive Date: 20111208
  Receipt Date: 20111202
  Transmission Date: 20120403
  Serious: Yes (Hospitalization, Other)
  Sender: FDA-Public Use
  Company Number: FR-MERCK-1112FRA00015

PATIENT
  Age: 55 Year
  Sex: Female
  Weight: 78 kg

DRUGS (8)
  1. HYDROCHLOROTHIAZIDE [Concomitant]
     Route: 048
  2. AMLODIPINE BESYLATE [Concomitant]
     Route: 048
  3. NEBIVOLOL HYDROCHLORIDE [Concomitant]
     Route: 048
  4. JANUMET [Suspect]
     Indication: DIABETES MELLITUS
     Route: 048
     Dates: end: 20110801
  5. ROSUVASTATIN CALCIUM [Concomitant]
     Route: 048
  6. ALISKIREN FUMARATE [Concomitant]
     Route: 048
  7. HYDROXYCHLOROQUINE SULFATE [Concomitant]
     Route: 048
  8. CANDESARTAN CILEXETIL [Concomitant]
     Route: 048

REACTIONS (1)
  - ARTHRALGIA [None]
